FAERS Safety Report 9006211 (Version 1)
Quarter: 2013Q1

REPORT INFORMATION
  Report Type: Spontaneous
  Country: US (occurrence: US)
  Receive Date: 20130110
  Receipt Date: 20130110
  Transmission Date: 20140127
  Serious: Yes (Death, Hospitalization, Disabling, Other)
  Sender: FDA-Public Use
  Company Number: US-009507513-0901USA02238

PATIENT
  Age: 41 Year
  Sex: Male
  Weight: 69.85 kg

DRUGS (3)
  1. SINGULAIR [Suspect]
     Indication: ASTHMA
     Dosage: 10 MG,COULD BE MORE TIME
     Route: 048
     Dates: start: 20040301, end: 20060712
  2. PREDNISOLONE [Concomitant]
  3. PERCOCET [Concomitant]

REACTIONS (5)
  - Completed suicide [Fatal]
  - Osteoporosis [Fatal]
  - Personality change [Fatal]
  - Spinal fracture [Fatal]
  - Thermal burn [Fatal]
